FAERS Safety Report 25640414 (Version 1)
Quarter: 2025Q3

REPORT INFORMATION
  Report Type: Spontaneous
  Country: CA (occurrence: CA)
  Receive Date: 20250804
  Receipt Date: 20250804
  Transmission Date: 20251020
  Serious: Yes (Death, Life-Threatening, Hospitalization)
  Sender: B. BRAUN MEDICAL INC.
  Company Number: None

PATIENT
  Age: 71 Year
  Sex: Male
  Weight: 90 kg

DRUGS (35)
  1. HEPARIN [Suspect]
     Active Substance: HEPARIN SODIUM
     Indication: Pulmonary embolism
     Dosage: 20000.0 UNITS?INDICATION:  PULMONARY?EMBOLISM
  2. ACETAMINOPHEN [Concomitant]
     Active Substance: ACETAMINOPHEN
  3. PROPOFOL [Concomitant]
     Active Substance: PROPOFOL
  4. MAGNESIUM SULFATE [Concomitant]
     Active Substance: MAGNESIUM SULFATE
  5. ACYCLOVIR [Concomitant]
     Active Substance: ACYCLOVIR
  6. AMIODARONE [Concomitant]
     Active Substance: AMIODARONE
  7. BISOPROLOL [Concomitant]
     Active Substance: BISOPROLOL
  8. CEFAZOLIN [Concomitant]
     Active Substance: CEFAZOLIN
  9. CEFTRIAXONE [Concomitant]
     Active Substance: CEFTRIAXONE
  10. CHOLECALCIFEROL [Concomitant]
     Active Substance: CHOLECALCIFEROL
  11. DEXMEDETOMIDINE [Concomitant]
     Active Substance: DEXMEDETOMIDINE
  12. DOBUTAMINE [Concomitant]
     Active Substance: DOBUTAMINE HYDROCHLORIDE
  13. EPINEPHRINE [Concomitant]
     Active Substance: EPINEPHRINE
  14. FRAGMIN [Concomitant]
     Active Substance: DALTEPARIN SODIUM
  15. FUROSEMIDE [Concomitant]
     Active Substance: FUROSEMIDE
  16. GLICLAZIDE [Concomitant]
     Active Substance: GLICLAZIDE
  17. HYDROCHLOROTHIAZIDE/ OLMESARTAN MEDOXOMIL [Concomitant]
  18. HYDROCORTISONE [Concomitant]
     Active Substance: HYDROCORTISONE
  19. HYDROMORPHONE [Concomitant]
     Active Substance: HYDROMORPHONE
  20. INSULIN NOS [Concomitant]
     Active Substance: INSULIN NOS
  21. LANSOPRAZOLE [Concomitant]
     Active Substance: LANSOPRAZOLE
  22. MEROPENEM [Concomitant]
     Active Substance: MEROPENEM
  23. METFORMIN [Concomitant]
     Active Substance: METFORMIN HYDROCHLORIDE
  24. METOCLOPRAMIDE [Concomitant]
     Active Substance: METOCLOPRAMIDE
  25. MOI-STIR [Concomitant]
  26. NOREPINEPHRINE [Concomitant]
     Active Substance: NOREPINEPHRINE
  27. PHOSPHORUS [Concomitant]
     Active Substance: PHOSPHORUS
  28. PIPERACILLIN SODIUM\TAZOBACTAM SODIUM [Concomitant]
     Active Substance: PIPERACILLIN SODIUM\TAZOBACTAM SODIUM
  29. POTASSIUM PHOSPHATES INJECTION, USP [Concomitant]
  30. ROCURONIUM [Concomitant]
     Active Substance: ROCURONIUM BROMIDE
  31. ROSUVASTATIN [Concomitant]
     Active Substance: ROSUVASTATIN
  32. ALBUTEROL [Concomitant]
     Active Substance: ALBUTEROL
  33. SEMAGLUTIDE [Concomitant]
     Active Substance: SEMAGLUTIDE
  34. THIAMINE HYDROCHLORIDE [Concomitant]
     Active Substance: THIAMINE HYDROCHLORIDE
  35. VANCOMYCIN [Concomitant]
     Active Substance: VANCOMYCIN

REACTIONS (3)
  - Duodenal ulcer [Fatal]
  - Shock haemorrhagic [Fatal]
  - Upper gastrointestinal haemorrhage [Fatal]
